FAERS Safety Report 6084911-X (Version None)
Quarter: 2009Q1

REPORT INFORMATION
  Report Type: 
  Country: None (occurrence: None)
  Receive Date: 20090220
  Receipt Date: 20090216
  Transmission Date: 20090719
  Serious: Yes (Life-Threatening, Hospitalization, Other)
  Sender: FDA-Public Use
  Company Number: PHHY2009BR05680

PATIENT
  Age: 20 Year
  Sex: Male
  Weight: 57 kg

DRUGS (4)
  1. FORASEQ [Suspect]
     Indication: BRONCHITIS
     Dosage: 2 TIMES PER DAY
  2. FORASEQ [Suspect]
     Indication: DYSPNOEA
     Dosage: UNK
     Dates: start: 20090215
  3. BEROTEC [Suspect]
     Dosage: 7 DROPS
  4. ATROVENT [Suspect]
     Dosage: 7 DROPS

REACTIONS (8)
  - ADENOIDECTOMY [None]
  - BLOOD PRESSURE SYSTOLIC ABNORMAL [None]
  - BRONCHITIS [None]
  - DYSPNOEA [None]
  - ENDOTRACHEAL INTUBATION [None]
  - HEART RATE DECREASED [None]
  - RESPIRATION ABNORMAL [None]
  - WEIGHT DECREASED [None]
